FAERS Safety Report 8090521-5 (Version None)
Quarter: 2012Q1

REPORT INFORMATION
  Report Type: 
  Country: None (occurrence: None)
  Receive Date: 20120129
  Receipt Date: 20111102
  Transmission Date: 20120608
  Serious: No
  Sender: FDA-Public Use
  Company Number: US-ABBOTT-11P-163-0871263-00

PATIENT
  Sex: Male

DRUGS (2)
  1. HUMIRA [Suspect]
     Indication: CROHN'S DISEASE
     Dosage: ON DAY 29 + THEN EVERY OTHER WEEK
     Route: 058
     Dates: start: 20110501
  2. HUMIRA [Suspect]
     Route: 058

REACTIONS (5)
  - TOOTH EXTRACTION [None]
  - ABDOMINAL DISTENSION [None]
  - TOOTH ABSCESS [None]
  - DYSPNOEA EXERTIONAL [None]
  - IMPAIRED HEALING [None]
